FAERS Safety Report 20503362 (Version 2)
Quarter: 2023Q1

REPORT INFORMATION
  Report Type: Spontaneous
  Country: JP (occurrence: JP)
  Receive Date: 20220222
  Receipt Date: 20230217
  Transmission Date: 20230418
  Serious: Yes (Hospitalization, Other)
  Sender: FDA-Public Use
  Company Number: JP-ELI_LILLY_AND_COMPANY-JP202202006159

PATIENT
  Age: 74 Year
  Sex: Female
  Weight: 44.2 kg

DRUGS (13)
  1. ALIMTA [Suspect]
     Active Substance: PEMETREXED DISODIUM
     Indication: Lung adenocarcinoma stage IV
     Dosage: 500 MG/M2, CYCLICAL
     Route: 041
     Dates: start: 20210914, end: 20220706
  2. ALIMTA [Suspect]
     Active Substance: PEMETREXED DISODIUM
     Dosage: 500 MG/M2, CYCLICAL
     Route: 041
     Dates: start: 20200416, end: 20200709
  3. ALIMTA [Suspect]
     Active Substance: PEMETREXED DISODIUM
     Dosage: 375 MG/M2, CYCLICAL
     Route: 041
     Dates: start: 20220728, end: 20221214
  4. PARAPLATIN [Concomitant]
     Active Substance: CARBOPLATIN
     Indication: Lung adenocarcinoma stage IV
     Dosage: 6AUC, CYCLICAL
     Route: 041
     Dates: start: 20200416, end: 20200709
  5. KEYTRUDA [Concomitant]
     Active Substance: PEMBROLIZUMAB
     Indication: Lung adenocarcinoma stage IV
     Dosage: 200 MG, CYCLICAL
     Route: 041
     Dates: start: 20200416, end: 20200709
  6. KEYTRUDA [Concomitant]
     Active Substance: PEMBROLIZUMAB
     Dosage: 200 MG, CYCLICAL
     Route: 041
     Dates: start: 20210216, end: 20210816
  7. FUDOSTEINE [Concomitant]
     Active Substance: FUDOSTEINE
     Indication: Chronic obstructive pulmonary disease
     Dosage: 400 MG, ONE TO THREE TIMES A DAY
     Route: 048
  8. AMBROXOL HYDROCHLORIDE [Concomitant]
     Active Substance: AMBROXOL HYDROCHLORIDE
     Indication: Chronic obstructive pulmonary disease
     Dosage: 15 MG, TID
     Route: 048
  9. AMLODIPINE [Concomitant]
     Active Substance: AMLODIPINE BESYLATE
     Indication: Hypertension
     Dosage: 2.5 MG, DAILY
     Route: 048
  10. PRAVASTATIN SODIUM [Concomitant]
     Active Substance: PRAVASTATIN SODIUM
     Indication: Hyperlipidaemia
     Dosage: 10 MG, DAILY
     Route: 048
  11. EDOXABAN TOSYLATE [Concomitant]
     Active Substance: EDOXABAN TOSYLATE
     Indication: Deep vein thrombosis
     Dosage: 30 MG, DAILY
     Route: 048
     Dates: start: 20190930
  12. PANVITAN M [Concomitant]
     Indication: Prophylaxis
     Dosage: 1 G, DAILY
     Route: 065
     Dates: start: 20210907
  13. HYDROXOCOBALAMIN [Concomitant]
     Active Substance: HYDROXOCOBALAMIN
     Indication: Prophylaxis
     Dosage: 1 MG, UNKNOWN
     Route: 030
     Dates: start: 20210907

REACTIONS (3)
  - Sclerema [Recovered/Resolved]
  - Pseudocellulitis [Recovered/Resolved]
  - Malignant neoplasm progression [Unknown]

NARRATIVE: CASE EVENT DATE: 20211022
